FAERS Safety Report 12410455 (Version 1)
Quarter: 2016Q2

REPORT INFORMATION
  Report Type: Spontaneous
  Country: DE (occurrence: DE)
  Receive Date: 20160527
  Receipt Date: 20160527
  Transmission Date: 20160815
  Serious: Yes (Death, Hospitalization, Other)
  Sender: FDA-Public Use
  Company Number: DE-SHIRE-DE201606466

PATIENT
  Age: 72 Year
  Sex: Male

DRUGS (5)
  1. SAMSCA [Suspect]
     Active Substance: TOLVAPTAN
     Indication: INAPPROPRIATE ANTIDIURETIC HORMONE SECRETION
     Dosage: 15 MG, 1X/DAY:QD
     Route: 048
     Dates: start: 20150810, end: 20150902
  2. BISOPROLOL [Concomitant]
     Active Substance: BISOPROLOL
     Indication: HYPERTENSION
     Dosage: 5 MG, 1X/DAY:QD
     Route: 048
  3. VALSARTAN. [Concomitant]
     Active Substance: VALSARTAN
     Indication: HYPERTENSION
     Dosage: 40 MG, 1X/DAY:QD
     Route: 048
  4. 476 (MESALAZINE/MESALAMINE) [Suspect]
     Active Substance: MESALAMINE
     Indication: COLITIS
     Dosage: 1 G, 3X/DAY:TID
     Route: 048
     Dates: start: 20150721
  5. VELMETIA [Concomitant]
     Active Substance: METFORMIN\SITAGLIPTIN
     Indication: TYPE 2 DIABETES MELLITUS
     Dosage: 2 (50/100) DF, 2X/DAY:BID

REACTIONS (8)
  - T-cell lymphoma [Unknown]
  - Septic shock [Fatal]
  - Pyrexia [Unknown]
  - Pneumonia [Unknown]
  - Staphylococcal infection [Unknown]
  - Sepsis [Fatal]
  - Neutropenia [Unknown]
  - Agranulocytosis [Fatal]

NARRATIVE: CASE EVENT DATE: 201509
